FAERS Safety Report 16867442 (Version 1)
Quarter: 2019Q3

REPORT INFORMATION
  Report Type: Spontaneous
  Country: US (occurrence: US)
  Receive Date: 20190930
  Receipt Date: 20190930
  Transmission Date: 20191005
  Serious: Yes (Other)
  Sender: FDA-Public Use
  Company Number: US-AKORN PHARMACEUTICALS-2019AKN02032

PATIENT
  Age: 59 Year
  Sex: Male
  Weight: 86 kg

DRUGS (2)
  1. AMINOCAPROIC ACID. [Suspect]
     Active Substance: AMINOCAPROIC ACID
     Dosage: 1 G/HR
     Route: 042
  2. AMINOCAPROIC ACID. [Suspect]
     Active Substance: AMINOCAPROIC ACID
     Dosage: 5 MG BOLUS
     Route: 042

REACTIONS (5)
  - Hypoxia [Recovered/Resolved]
  - Pulmonary embolism [Recovered/Resolved]
  - Intracardiac thrombus [Recovered/Resolved]
  - Hypotension [Recovered/Resolved]
  - Cardiac output decreased [Recovered/Resolved]
